FAERS Safety Report 16775296 (Version 3)
Quarter: 2020Q1

REPORT INFORMATION
  Report Type: Report from Study
  Country: None (occurrence: US)
  Receive Date: 20190905
  Receipt Date: 20200316
  Transmission Date: 20200409
  Serious: Yes (Other)
  Sender: FDA-Public Use
  Company Number: US-ABBVIE-19K-163-2818957-00

PATIENT
  Age: 62 Year
  Sex: Male

DRUGS (2)
  1. HUMIRA [Suspect]
     Active Substance: ADALIMUMAB
     Route: 058
     Dates: start: 2020
  2. HUMIRA [Suspect]
     Active Substance: ADALIMUMAB
     Indication: CROHN^S DISEASE
     Route: 058
     Dates: end: 201911

REACTIONS (5)
  - Tooth infection [Recovering/Resolving]
  - Upper respiratory tract infection [Recovering/Resolving]
  - Infection [Recovered/Resolved]
  - Gastrointestinal polyp [Unknown]
  - Precancerous cells present [Unknown]

NARRATIVE: CASE EVENT DATE: 201905
